FAERS Safety Report 11672533 (Version 1)
Quarter: 2015Q4

REPORT INFORMATION
  Report Type: Spontaneous
  Country: US (occurrence: US)
  Receive Date: 20151028
  Receipt Date: 20151028
  Transmission Date: 20160304
  Serious: Yes (Death, Other)
  Sender: FDA-Public Use
  Company Number: US-CELGENE-163-21660-14013962

PATIENT

DRUGS (3)
  1. ABRAXANE [Suspect]
     Active Substance: PACLITAXEL
     Route: 050
  2. GEMCITABINE [Suspect]
     Active Substance: GEMCITABINE\GEMCITABINE HYDROCHLORIDE
     Indication: PANCREATIC CARCINOMA
     Route: 065
  3. ABRAXANE [Suspect]
     Active Substance: PACLITAXEL
     Indication: PANCREATIC CARCINOMA METASTATIC
     Route: 050

REACTIONS (7)
  - Neuropathy peripheral [Unknown]
  - Death [Fatal]
  - Thrombocytopenia [Unknown]
  - Fatigue [Unknown]
  - Anaemia [Unknown]
  - Pancreatic carcinoma [Unknown]
  - Neutropenia [Unknown]
